FAERS Safety Report 14692532 (Version 1)
Quarter: 2018Q1

REPORT INFORMATION
  Report Type: Spontaneous
  Country: US (occurrence: US)
  Receive Date: 20180329
  Receipt Date: 20180329
  Transmission Date: 20180509
  Serious: No
  Sender: FDA-Public Use
  Company Number: US-TEVA-2018-US-871273

PATIENT
  Sex: Male

DRUGS (4)
  1. OXYCODONE [Concomitant]
     Active Substance: OXYCODONE
     Indication: PAIN
  2. FENTANYL. [Suspect]
     Active Substance: FENTANYL
     Indication: PAIN
     Dates: start: 2016
  3. FENTANYL. [Suspect]
     Active Substance: FENTANYL
     Dosage: EVERY 3 DAYS AS PRESCRIBED
     Dates: start: 201801
  4. OXYCODONE [Concomitant]
     Active Substance: OXYCODONE
     Dates: end: 20160422

REACTIONS (3)
  - Decreased appetite [Unknown]
  - Weight decreased [Unknown]
  - Feeling cold [Unknown]
